FAERS Safety Report 9783004 (Version 1)
Quarter: 2013Q4

REPORT INFORMATION
  Report Type: Spontaneous
  Country: US (occurrence: None)
  Receive Date: 20131224
  Receipt Date: 20131224
  Transmission Date: 20140711
  Serious: Yes (Other)
  Sender: FDA-Public Use
  Company Number: None

PATIENT
  Age: 70 Year
  Sex: Male
  Weight: 78.47 kg

DRUGS (1)
  1. FORMOTEROL\BUDESONIDE [Suspect]
     Indication: ASTHMA
     Dosage: 2.5 ML  ONCE DAILY  INHALATION/NEBULIZER
     Route: 055
     Dates: start: 20130610, end: 20130809

REACTIONS (8)
  - Overdose [None]
  - Initial insomnia [None]
  - Arrhythmia [None]
  - Palpitations [None]
  - Stress [None]
  - Rash [None]
  - Pruritus [None]
  - Bradycardia [None]
